FAERS Safety Report 4834023-5 (Version None)
Quarter: 2005Q4

REPORT INFORMATION
  Report Type: 
  Country: None (occurrence: None)
  Receive Date: 20051118
  Receipt Date: 20051107
  Transmission Date: 20060501
  Serious: Yes (Death)
  Sender: FDA-Public Use
  Company Number: 2005-BP-19360RO

PATIENT
  Age: 25 Year
  Sex: Male

DRUGS (1)
  1. COCAINE (COCAINE) [Suspect]

REACTIONS (13)
  - BLOOD PRESSURE SYSTOLIC DECREASED [None]
  - BRADYCARDIA [None]
  - CARDIO-RESPIRATORY ARREST [None]
  - CONVULSION [None]
  - ELECTROMECHANICAL DISSOCIATION [None]
  - HAEMODYNAMIC INSTABILITY [None]
  - HYPOTENSION [None]
  - INTENTIONAL DRUG MISUSE [None]
  - METABOLIC ACIDOSIS [None]
  - PUPIL FIXED [None]
  - RESPIRATORY ACIDOSIS [None]
  - THERAPY NON-RESPONDER [None]
  - TOXICOLOGIC TEST ABNORMAL [None]
